FAERS Safety Report 18783723 (Version 1)
Quarter: 2021Q1

REPORT INFORMATION
  Report Type: Spontaneous
  Country: US (occurrence: US)
  Receive Date: 20210125
  Receipt Date: 20210125
  Transmission Date: 20210419
  Serious: No
  Sender: FDA-Public Use
  Company Number: US-AIMMUNE THERAPEUTICS, INC.-2021AIMT00021

PATIENT

DRUGS (1)
  1. PALFORZIA [Suspect]
     Active Substance: PEANUT
     Indication: FOOD ALLERGY
     Dosage: 12 MG, 1X/DAY
     Route: 048
     Dates: start: 202011

REACTIONS (7)
  - Tongue pruritus [Unknown]
  - Throat irritation [Unknown]
  - Psychological trauma [Unknown]
  - Abdominal pain upper [Unknown]
  - Lip swelling [Unknown]
  - Vomiting [Unknown]
  - Dyspnoea [Unknown]
